FAERS Safety Report 24783920 (Version 2)
Quarter: 2025Q1

REPORT INFORMATION
  Report Type: Report from Study
  Country: JP (occurrence: JP)
  Receive Date: 20241227
  Receipt Date: 20250310
  Transmission Date: 20250408
  Serious: Yes (Death)
  Sender: SHIONOGI
  Company Number: JP-shionogi-202400000273

PATIENT
  Age: 70 Year
  Sex: Male
  Weight: 74.7 kg

DRUGS (21)
  1. CEFIDEROCOL [Suspect]
     Active Substance: CEFIDEROCOL
     Indication: Febrile neutropenia
     Route: 041
     Dates: start: 20240909, end: 20240909
  2. CEFIDEROCOL [Suspect]
     Active Substance: CEFIDEROCOL
     Indication: Bacteraemia
  3. CEFIDEROCOL [Suspect]
     Active Substance: CEFIDEROCOL
     Indication: Septic shock
  4. CEFEPIME [Concomitant]
     Active Substance: CEFEPIME HYDROCHLORIDE
     Indication: Febrile neutropenia
     Route: 065
     Dates: start: 20240908, end: 20240909
  5. CEFEPIME [Concomitant]
     Active Substance: CEFEPIME HYDROCHLORIDE
     Indication: Bacteraemia
  6. CEFEPIME [Concomitant]
     Active Substance: CEFEPIME HYDROCHLORIDE
     Indication: Septic shock
  7. LEVOFLOXACIN HEMIHYDRATE [Concomitant]
     Active Substance: LEVOFLOXACIN
     Indication: Febrile neutropenia
     Route: 065
     Dates: start: 20240909, end: 20240909
  8. LEVOFLOXACIN HEMIHYDRATE [Concomitant]
     Active Substance: LEVOFLOXACIN
     Indication: Bacteraemia
  9. LEVOFLOXACIN HEMIHYDRATE [Concomitant]
     Active Substance: LEVOFLOXACIN
     Indication: Septic shock
  10. AZACTAM [Concomitant]
     Active Substance: AZTREONAM
     Indication: Febrile neutropenia
     Route: 065
     Dates: start: 20240909, end: 20240909
  11. AZACTAM [Concomitant]
     Active Substance: AZTREONAM
     Indication: Bacteraemia
  12. AZACTAM [Concomitant]
     Active Substance: AZTREONAM
     Indication: Septic shock
  13. METRONIDAZOLE [Concomitant]
     Active Substance: METRONIDAZOLE
     Indication: Febrile neutropenia
     Route: 065
     Dates: start: 20240909, end: 20240909
  14. METRONIDAZOLE [Concomitant]
     Active Substance: METRONIDAZOLE
     Indication: Bacteraemia
  15. METRONIDAZOLE [Concomitant]
     Active Substance: METRONIDAZOLE
     Indication: Septic shock
  16. VITAMEDIN [CYANOCOBALAMIN;PYRIDOXINE HYDROCHLORIDE;THIAMINE HYDROCHLOR [Concomitant]
     Indication: Febrile neutropenia
     Route: 065
     Dates: start: 20240909, end: 20240909
  17. VITAMEDIN [CYANOCOBALAMIN;PYRIDOXINE HYDROCHLORIDE;THIAMINE HYDROCHLOR [Concomitant]
     Indication: Bacteraemia
  18. VITAMEDIN [CYANOCOBALAMIN;PYRIDOXINE HYDROCHLORIDE;THIAMINE HYDROCHLOR [Concomitant]
     Indication: Septic shock
  19. MIDAZOLAM [Concomitant]
     Active Substance: MIDAZOLAM
     Indication: Product used for unknown indication
     Route: 065
     Dates: start: 20240909, end: 20240909
  20. HYDROCORTISONE SODIUM SUCCINATE [Concomitant]
     Active Substance: HYDROCORTISONE SODIUM SUCCINATE
     Indication: Product used for unknown indication
     Route: 065
     Dates: end: 20240910
  21. NOREPINEPHRINE BITARTRATE [Concomitant]
     Active Substance: NOREPINEPHRINE BITARTRATE
     Indication: Product used for unknown indication
     Route: 065
     Dates: end: 20240910

REACTIONS (1)
  - Febrile neutropenia [Fatal]
